FAERS Safety Report 5708422-3 (Version None)
Quarter: 2008Q2

REPORT INFORMATION
  Report Type: 
  Country: None (occurrence: None)
  Receive Date: 20080414
  Receipt Date: 20080403
  Transmission Date: 20081010
  Serious: Yes (Hospitalization)
  Sender: FDA-Public Use
  Company Number: 2008-01172

PATIENT
  Age: 64 Year
  Sex: Male
  Weight: 77.4 kg

DRUGS (6)
  1. VELCADE [Suspect]
     Indication: PLEURAL MESOTHELIOMA MALIGNANT
     Dosage: 2.47 MG, INTRAVENOUS
     Route: 042
     Dates: start: 20080310, end: 20080331
  2. CISPLATIN [Suspect]
     Indication: PLEURAL MESOTHELIOMA MALIGNANT
     Dosage: 114 MG, INTRAVENOUS
     Route: 042
     Dates: start: 20080310, end: 20080331
  3. ACETYLSALICYLIC ACID SRT [Concomitant]
  4. RAMIPRIL [Concomitant]
  5. SIMVASTATIN [Concomitant]
  6. OMEPRAZOLE [Concomitant]

REACTIONS (2)
  - CHEST PAIN [None]
  - COLD SWEAT [None]
